FAERS Safety Report 19097809 (Version 1)
Quarter: 2021Q2

REPORT INFORMATION
  Report Type: Spontaneous
  Country: US (occurrence: US)
  Receive Date: 20210406
  Receipt Date: 20210406
  Transmission Date: 20210717
  Serious: Yes (Hospitalization)
  Sender: FDA-Public Use
  Company Number: None

PATIENT
  Age: 64 Year
  Sex: Male

DRUGS (18)
  1. ATORVASTATIN [Concomitant]
     Active Substance: ATORVASTATIN
     Dates: start: 20210311
  2. FLOMAX [Concomitant]
     Active Substance: TAMSULOSIN HYDROCHLORIDE
  3. MAGNESIUM [Concomitant]
     Active Substance: MAGNESIUM
     Dates: start: 20210311
  4. TORSEMIDE. [Concomitant]
     Active Substance: TORSEMIDE
     Dates: start: 20210311
  5. GABAPENTIN. [Concomitant]
     Active Substance: GABAPENTIN
     Dates: start: 20210311
  6. FEROSUL [Concomitant]
     Active Substance: FERROUS SULFATE
     Dates: start: 20210311
  7. SPRYCEL [Concomitant]
     Active Substance: DASATINIB
     Dates: start: 20210310
  8. PLAVIX [Concomitant]
     Active Substance: CLOPIDOGREL BISULFATE
     Dates: start: 20210311
  9. MULTI VITAMI [Concomitant]
     Dates: start: 20210311
  10. FOLIC ACID. [Concomitant]
     Active Substance: FOLIC ACID
     Dates: start: 20210311
  11. LEVOTHYROXIN [Concomitant]
     Active Substance: LEVOTHYROXINE
     Dates: start: 20210311
  12. ZOFRAN [Concomitant]
     Active Substance: ONDANSETRON HYDROCHLORIDE
  13. SPRYCEL [Concomitant]
     Active Substance: DASATINIB
     Dates: start: 20210310
  14. SPRYCEL [Suspect]
     Active Substance: DASATINIB
     Indication: DIABETES MELLITUS
     Route: 048
     Dates: start: 20210331
  15. CARVEDILOL. [Concomitant]
     Active Substance: CARVEDILOL
     Dates: start: 20210311
  16. AMIODARONE [Concomitant]
     Active Substance: AMIODARONE
     Dates: start: 20210311
  17. VITAMIN B?1 [Concomitant]
     Active Substance: THIAMINE HYDROCHLORIDE
     Dates: start: 20210311
  18. VITAMIN D2 [Concomitant]
     Active Substance: ERGOCALCIFEROL
     Dates: start: 20210311

REACTIONS (2)
  - Internal haemorrhage [None]
  - Cardiac failure congestive [None]

NARRATIVE: CASE EVENT DATE: 20210405
